FAERS Safety Report 5313249-0 (Version None)
Quarter: 2007Q2

REPORT INFORMATION
  Report Type: 
  Country: None (occurrence: None)
  Receive Date: 20070501
  Receipt Date: 20070423
  Transmission Date: 20071010
  Serious: Yes (Hospitalization, Other)
  Sender: FDA-Public Use
  Company Number: US-JNJFOC-20070405472

PATIENT
  Sex: Female
  Weight: 66.23 kg

DRUGS (14)
  1. FENTANYL TRANSDERMAL SYSTEM [Suspect]
     Indication: PAIN
     Route: 062
  2. AMITRIPTYLINE HCL [Concomitant]
     Indication: NERVOUSNESS
     Route: 048
  3. NORVASC [Concomitant]
     Indication: BLOOD PRESSURE
     Route: 048
  4. TOPROL-XL [Concomitant]
     Route: 048
  5. DIOVAN [Concomitant]
     Indication: BLOOD PRESSURE
     Route: 048
  6. PROTONIX [Concomitant]
     Indication: GASTRIC DISORDER
     Route: 048
  7. SINGULAIR [Concomitant]
     Indication: LUNG DISORDER
     Route: 048
  8. SPIRIVA [Concomitant]
     Indication: LUNG DISORDER
     Route: 055
  9. ADVAIR DISKUS 100/50 [Concomitant]
     Dosage: 250/50
     Route: 048
  10. FLONASE [Concomitant]
     Indication: LUNG DISORDER
     Route: 045
  11. FOSAMAX [Concomitant]
     Indication: OSTEOPOROSIS
     Route: 048
  12. ASPIRIN [Concomitant]
     Indication: CARDIAC DISORDER
     Route: 048
  13. PREDNISONE TAB [Concomitant]
     Indication: PHENYLKETONURIA
     Route: 048
  14. FLUCONAZOLE [Concomitant]
     Route: 048

REACTIONS (4)
  - PAIN [None]
  - PHARMACEUTICAL PRODUCT COMPLAINT [None]
  - PHENYLKETONURIA [None]
  - WRONG TECHNIQUE IN DRUG USAGE PROCESS [None]
